FAERS Safety Report 9289504 (Version 1)
Quarter: 2013Q2

REPORT INFORMATION
  Report Type: Spontaneous
  Country: US (occurrence: US)
  Receive Date: 20130515
  Receipt Date: 20130515
  Transmission Date: 20140414
  Serious: No
  Sender: FDA-Public Use
  Company Number: US-009507513-1305USA003258

PATIENT
  Age: 56 Year
  Sex: Male
  Weight: 97.51 kg

DRUGS (5)
  1. VICTRELIS [Suspect]
     Indication: HEPATITIS C
     Dosage: 800 MG, EVERY 7-9 HOURS
     Route: 048
  2. REBETOL [Suspect]
     Dosage: 600 MG, UNK
     Route: 048
  3. PEGASYS [Suspect]
  4. EXFORGE [Concomitant]
     Dosage: 10-160 MG
     Route: 048
  5. IMODIUM A-D [Concomitant]
     Dosage: 2 MG, UNK
     Route: 048

REACTIONS (4)
  - Mood altered [Unknown]
  - Crying [Unknown]
  - Fatigue [Unknown]
  - Pollakiuria [Unknown]
